FAERS Safety Report 21313179 (Version 1)
Quarter: 2022Q3

REPORT INFORMATION
  Report Type: Spontaneous
  Country: TW (occurrence: TW)
  Receive Date: 20220909
  Receipt Date: 20220909
  Transmission Date: 20221026
  Serious: Yes (Hospitalization, Other)
  Sender: FDA-Public Use
  Company Number: TW-BAYER-2022P008193

PATIENT
  Age: 53 Year
  Sex: Male

DRUGS (10)
  1. CIPROFLOXACIN [Suspect]
     Active Substance: CIPROFLOXACIN
     Indication: Bronchiectasis
     Route: 048
  2. CIPROFLOXACIN [Suspect]
     Active Substance: CIPROFLOXACIN
     Indication: Lower respiratory tract infection bacterial
  3. CIPROFLOXACIN [Suspect]
     Active Substance: CIPROFLOXACIN
     Indication: Pseudomonas infection
  4. CIPROFLOXACIN [Suspect]
     Active Substance: CIPROFLOXACIN
     Indication: Pneumonia pseudomonal
  5. AMIKACIN [Suspect]
     Active Substance: AMIKACIN
     Indication: Bronchiectasis
     Route: 055
  6. AMIKACIN [Suspect]
     Active Substance: AMIKACIN
     Indication: Lower respiratory tract infection bacterial
     Route: 055
  7. AMIKACIN [Suspect]
     Active Substance: AMIKACIN
     Indication: Pseudomonas infection
  8. COLISTIN [Suspect]
     Active Substance: COLISTIN
     Indication: Bronchiectasis
     Route: 055
  9. COLISTIN [Suspect]
     Active Substance: COLISTIN
     Indication: Lower respiratory tract infection bacterial
     Route: 055
  10. COLISTIN [Suspect]
     Active Substance: COLISTIN
     Indication: Pseudomonas infection

REACTIONS (2)
  - Pneumatosis intestinalis [Recovered/Resolved]
  - Diarrhoea [Recovered/Resolved]

NARRATIVE: CASE EVENT DATE: 20210801
